FAERS Safety Report 4315840-7 (Version None)
Quarter: 2004Q1

REPORT INFORMATION
  Report Type: 
  Country: None (occurrence: None)
  Receive Date: 20040310
  Receipt Date: 20040224
  Transmission Date: 20041129
  Serious: Yes (Life-Threatening, Hospitalization)
  Sender: FDA-Public Use
  Company Number: FR-JNJFOC-20040300271

PATIENT
  Age: 19 Year
  Sex: Male
  Weight: 55 kg

DRUGS (3)
  1. TOPIRAMATE [Suspect]
     Indication: EPILEPSY
     Dosage: 25 MG, IN 1 DAY, ORAL
     Route: 048
  2. URBANYL (CLOBAZAM) [Suspect]
     Indication: EPILEPSY
     Dosage: 10 MG, IN 1 DAY, ORAL
     Route: 048
  3. KEPPRA [Suspect]
     Indication: EPILEPSY
     Dosage: 3 G, IN 1 DAY, ORAL
     Route: 048

REACTIONS (21)
  - BACILLUS INFECTION [None]
  - BACTERIAL INFECTION [None]
  - BLOOD PRESSURE SYSTOLIC DECREASED [None]
  - DRUG INEFFECTIVE [None]
  - ESCHERICHIA INFECTION [None]
  - HEART RATE INCREASED [None]
  - HEPATITIS [None]
  - HEPATOCELLULAR DAMAGE [None]
  - HYPOKALAEMIA [None]
  - OBSTRUCTIVE AIRWAYS DISORDER [None]
  - OEDEMA PERIPHERAL [None]
  - PERIPHERAL COLDNESS [None]
  - PNEUMOCOCCAL INFECTION [None]
  - PNEUMONIA ASPIRATION [None]
  - SKIN DISCOLOURATION [None]
  - SOMNOLENCE [None]
  - STAPHYLOCOCCAL INFECTION [None]
  - STATUS EPILEPTICUS [None]
  - STREPTOCOCCAL INFECTION [None]
  - THROMBOCYTOPENIA [None]
  - URINARY RETENTION [None]
